FAERS Safety Report 4663711-9 (Version None)
Quarter: 2005Q2

REPORT INFORMATION
  Report Type: 
  Country: None (occurrence: None)
  Receive Date: 20050516
  Receipt Date: 20050504
  Transmission Date: 20051028
  Serious: Yes (Other)
  Sender: FDA-Public Use
  Company Number: HQWYE578306MAY05

PATIENT
  Age: 56 Year
  Sex: Female
  Weight: 63.56 kg

DRUGS (1)
  1. PREMARIN [Suspect]
     Indication: MENOPAUSE
     Dosage: DAILY, ORAL
     Route: 048
     Dates: start: 19940101, end: 19960101

REACTIONS (2)
  - BREAST CANCER METASTATIC [None]
  - LYMPHOMA [None]
